FAERS Safety Report 6089311-4 (Version None)
Quarter: 2009Q1

REPORT INFORMATION
  Report Type: 
  Country: None (occurrence: None)
  Receive Date: 20090224
  Receipt Date: 20090212
  Transmission Date: 20090719
  Serious: Yes (Hospitalization)
  Sender: FDA-Public Use
  Company Number: US-WYE-H08188609

PATIENT
  Sex: Female
  Weight: 58.57 kg

DRUGS (6)
  1. PREMARIN [Suspect]
     Dosage: DECREASED SEVERAL YEARS AGO  FROM 1.25MG TO 0.3MG
     Route: 048
     Dates: start: 19630101, end: 20090123
  2. ACTONEL [Concomitant]
     Indication: OSTEOPOROSIS
     Dosage: UNKNOWN
     Route: 065
  3. ADVAIR HFA [Concomitant]
     Indication: ASTHMA
     Dosage: UNKNOWN
     Route: 065
  4. CRESTOR [Concomitant]
     Indication: BLOOD CHOLESTEROL INCREASED
     Dosage: UNKNOWN
     Route: 065
  5. DIOVAN [Suspect]
     Indication: HYPERTENSION
     Dosage: UNKNOWN
     Route: 065
     Dates: start: 20040101, end: 20090120
  6. ASPIRIN [Concomitant]
     Dosage: UNKNOWN
     Route: 065

REACTIONS (1)
  - BLOOD PRESSURE DECREASED [None]
